FAERS Safety Report 10519123 (Version 4)
Quarter: 2015Q1

REPORT INFORMATION
  Report Type: Spontaneous
  Country: US (occurrence: US)
  Receive Date: 20141015
  Receipt Date: 20150120
  Transmission Date: 20150720
  Serious: Yes (Death, Other)
  Sender: FDA-Public Use
  Company Number: AD08-22-2013 12 47 14

PATIENT
  Sex: Male
  Weight: 70 kg

DRUGS (4)
  1. VOTRIENT [Suspect]
     Active Substance: PAZOPANIB HYDROCHLORIDE
     Indication: MALIGNANT URINARY TRACT NEOPLASM
     Dosage: 600 MG, QD
     Route: 065
     Dates: start: 20130805
  2. VOTRIENT [Suspect]
     Active Substance: PAZOPANIB HYDROCHLORIDE
     Dosage: UNK
  3. VOTRIENT [Suspect]
     Active Substance: PAZOPANIB HYDROCHLORIDE
     Indication: RENAL CANCER
     Dosage: UNK
     Dates: start: 2013
  4. VOTRIENT [Suspect]
     Active Substance: PAZOPANIB HYDROCHLORIDE
     Dosage: UNK
     Dates: start: 2013

REACTIONS (11)
  - Blood pressure increased [Unknown]
  - Nausea [Unknown]
  - Hair colour changes [Unknown]
  - Fatigue [Unknown]
  - Chronic obstructive pulmonary disease [Fatal]
  - Pneumonia [Fatal]
  - Adverse drug reaction [Unknown]
  - Palpitations [Unknown]
  - Weight decreased [Unknown]
  - Flatulence [Unknown]
  - Diarrhoea [Unknown]
